FAERS Safety Report 5596854-6 (Version None)
Quarter: 2008Q1

REPORT INFORMATION
  Report Type: 
  Country: None (occurrence: None)
  Receive Date: 20080119
  Receipt Date: 20080114
  Transmission Date: 20080703
  Serious: Yes (Hospitalization, Other)
  Sender: FDA-Public Use
  Company Number: US-PFIZER INC-2008004027

PATIENT
  Sex: Female

DRUGS (4)
  1. BEXTRA [Suspect]
     Indication: ARTHRALGIA
  2. BEXTRA [Suspect]
     Indication: ARTHRITIS
  3. CELEBREX [Suspect]
     Indication: ARTHRALGIA
     Dates: start: 20010101
  4. CELEBREX [Suspect]
     Indication: ARTHRITIS

REACTIONS (1)
  - CEREBROVASCULAR ACCIDENT [None]
